FAERS Safety Report 21539259 (Version 6)
Quarter: 2023Q1

REPORT INFORMATION
  Report Type: Spontaneous
  Country: US (occurrence: US)
  Receive Date: 20221102
  Receipt Date: 20230331
  Transmission Date: 20230418
  Serious: No
  Sender: FDA-Public Use
  Company Number: US-BIOGEN-2022BI01165117

PATIENT
  Sex: Female

DRUGS (11)
  1. VUMERITY [Suspect]
     Active Substance: DIROXIMEL FUMARATE
     Indication: Multiple sclerosis
     Route: 050
     Dates: start: 20220822
  2. VUMERITY [Suspect]
     Active Substance: DIROXIMEL FUMARATE
     Route: 050
  3. VUMERITY [Suspect]
     Active Substance: DIROXIMEL FUMARATE
     Dosage: STARTING DOSE
     Route: 050
     Dates: start: 20220903
  4. VUMERITY [Suspect]
     Active Substance: DIROXIMEL FUMARATE
     Dosage: MAINTENANCE DOSE
     Route: 050
  5. VUMERITY [Suspect]
     Active Substance: DIROXIMEL FUMARATE
     Route: 050
     Dates: start: 20221114, end: 20230118
  6. VUMERITY [Suspect]
     Active Substance: DIROXIMEL FUMARATE
     Route: 050
     Dates: start: 20220903, end: 202301
  7. VUMERITY [Suspect]
     Active Substance: DIROXIMEL FUMARATE
     Route: 050
  8. IRON [Concomitant]
     Active Substance: IRON
     Route: 050
  9. IBUPROFEN [Concomitant]
     Active Substance: IBUPROFEN
     Route: 050
  10. PREDNISONE [Concomitant]
     Active Substance: PREDNISONE
     Route: 050
  11. FLEXERIL [Concomitant]
     Active Substance: CYCLOBENZAPRINE HYDROCHLORIDE
     Route: 050

REACTIONS (17)
  - Retching [Not Recovered/Not Resolved]
  - Musculoskeletal disorder [Not Recovered/Not Resolved]
  - Abdominal discomfort [Not Recovered/Not Resolved]
  - Musculoskeletal stiffness [Unknown]
  - Visual impairment [Unknown]
  - Migraine [Unknown]
  - Balance disorder [Unknown]
  - Head injury [Unknown]
  - Procedural pain [Unknown]
  - Concussion [Unknown]
  - Dysphagia [Unknown]
  - Gastric disorder [Unknown]
  - Ligament sprain [Unknown]
  - Dizziness [Unknown]
  - Abdominal pain upper [Not Recovered/Not Resolved]
  - Flushing [Not Recovered/Not Resolved]
  - Diarrhoea [Not Recovered/Not Resolved]

NARRATIVE: CASE EVENT DATE: 20220101
